FAERS Safety Report 9060192 (Version 1)
Quarter: 2013Q1

REPORT INFORMATION
  Report Type: Spontaneous
  Country: US (occurrence: None)
  Receive Date: 20130206
  Receipt Date: 20130206
  Transmission Date: 20140127
  Serious: Yes (Hospitalization)
  Sender: FDA-Public Use
  Company Number: None

PATIENT
  Age: 46 Year
  Sex: Female
  Weight: 47.63 kg

DRUGS (1)
  1. TAMIFLU (OSELTAMIVIR PHOSPHATE) CAPSULES [Suspect]
     Dates: start: 20130105, end: 20130105

REACTIONS (2)
  - Rash erythematous [None]
  - Dyspnoea [None]
